FAERS Safety Report 8811023 (Version 2)
Quarter: 2016Q3

REPORT INFORMATION
  Report Type: Spontaneous
  Country: US (occurrence: US)
  Receive Date: 20120927
  Receipt Date: 20160804
  Transmission Date: 20161109
  Serious: Yes (Hospitalization, Disabling, Other)
  Sender: FDA-Public Use
  Company Number: US-009507513-1209USA007694

PATIENT
  Sex: Female

DRUGS (2)
  1. FOSAMAX [Suspect]
     Active Substance: ALENDRONATE SODIUM
     Dosage: 70 MG, UNKNOWN
     Route: 048
     Dates: start: 20030717, end: 200309
  2. FOSAMAX [Suspect]
     Active Substance: ALENDRONATE SODIUM
     Indication: PRODUCT USED FOR UNKNOWN INDICATION
     Dosage: UNK, UNKNOWN
     Route: 048

REACTIONS (8)
  - Femur fracture [Unknown]
  - Surgery [Unknown]
  - Localised infection [Unknown]
  - Device failure [Unknown]
  - Limb deformity [Not Recovered/Not Resolved]
  - Tibia fracture [Unknown]
  - Fracture nonunion [Not Recovered/Not Resolved]
  - Osteomyelitis [Unknown]

NARRATIVE: CASE EVENT DATE: 200107
